FAERS Safety Report 7383925-7 (Version None)
Quarter: 2011Q1

REPORT INFORMATION
  Report Type: 
  Country: None (occurrence: None)
  Receive Date: 20110330
  Receipt Date: 20110325
  Transmission Date: 20110831
  Serious: Yes (Other)
  Sender: FDA-Public Use
  Company Number: US-ELI_LILLY_AND_COMPANY-US201103007517

PATIENT
  Sex: Male

DRUGS (3)
  1. METFORMIN [Concomitant]
     Indication: TYPE 2 DIABETES MELLITUS
     Dosage: UNK
     Route: 048
  2. BYETTA [Suspect]
     Indication: TYPE 2 DIABETES MELLITUS
     Dosage: 5 UG, BID
     Route: 058
  3. BYETTA [Suspect]
     Dosage: 10 UG, BID
     Route: 058

REACTIONS (4)
  - HYPERHIDROSIS [None]
  - VOMITING [None]
  - CHEST DISCOMFORT [None]
  - ARRHYTHMIA [None]
